FAERS Safety Report 6457726-8 (Version None)
Quarter: 2009Q4

REPORT INFORMATION
  Report Type: 
  Country: None (occurrence: None)
  Receive Date: 20091125
  Receipt Date: 20091118
  Transmission Date: 20100525
  Serious: Yes (Hospitalization)
  Sender: FDA-Public Use
  Company Number: FR-BRISTOL-MYERS SQUIBB COMPANY-14865802

PATIENT
  Age: 83 Year
  Sex: Female

DRUGS (12)
  1. APROVEL TABS 75 MG [Suspect]
     Route: 048
     Dates: end: 20090806
  2. ALLOPURINOL [Suspect]
     Dosage: ALSO TAKEN AS CONMED
     Route: 048
  3. IXPRIM [Suspect]
     Dosage: ALSO TAKEN AS CONMED
  4. SERTRALINE HCL [Concomitant]
  5. ATARAX [Concomitant]
  6. CARDENSIEL [Concomitant]
  7. LASILIX [Concomitant]
  8. NITRODERM [Concomitant]
  9. AMIODARONE HCL [Concomitant]
     Dosage: 1DOSAGEFORM=1TABS,1 TABLET PER DAY 5 OVER 7 DAYS
  10. KARDEGIC [Concomitant]
  11. OMEPRAZOLE [Concomitant]
  12. ZOLOFT [Concomitant]

REACTIONS (8)
  - ANAEMIA [None]
  - BLOOD PHOSPHORUS INCREASED [None]
  - FALL [None]
  - HYPOKALAEMIA [None]
  - MYOCARDIAL INFARCTION [None]
  - PYELONEPHRITIS ACUTE [None]
  - RENAL FAILURE ACUTE [None]
  - RHABDOMYOLYSIS [None]
